FAERS Safety Report 5392060-9 (Version None)
Quarter: 2007Q3

REPORT INFORMATION
  Report Type: 
  Country: None (occurrence: None)
  Receive Date: 20070720
  Receipt Date: 20070705
  Transmission Date: 20080115
  Serious: Yes (Hospitalization, Other)
  Sender: FDA-Public Use
  Company Number: US-BRISTOL-MYERS SQUIBB COMPANY-13850482

PATIENT
  Age: 65 Year
  Sex: Male

DRUGS (8)
  1. GLUCOPHAGE [Suspect]
     Indication: DIABETES MELLITUS
     Dates: start: 20020101
  2. PRINIVIL [Suspect]
     Indication: PAIN
     Route: 048
  3. VIOXX [Suspect]
     Indication: PAIN
     Dosage: INC. TO 50/MG/DAY
     Dates: start: 19990101, end: 20030101
  4. CODEINE SUL TAB [Suspect]
  5. ASPIRIN [Concomitant]
  6. ATENOLOL [Concomitant]
  7. PAXIL [Concomitant]
  8. WARFARIN SODIUM [Concomitant]

REACTIONS (18)
  - ABDOMINAL DISCOMFORT [None]
  - CARDIAC FAILURE CONGESTIVE [None]
  - CARDIOVASCULAR DISORDER [None]
  - CEREBROVASCULAR ACCIDENT [None]
  - CHEST DISCOMFORT [None]
  - CORONARY ARTERY DISEASE [None]
  - COUGH [None]
  - DEPRESSION [None]
  - DIABETES MELLITUS [None]
  - DIARRHOEA [None]
  - DIZZINESS [None]
  - DRUG HYPERSENSITIVITY [None]
  - HYPERTENSION [None]
  - MYOCARDIAL INFARCTION [None]
  - PERICARDIAL EFFUSION [None]
  - PSORIATIC ARTHROPATHY [None]
  - RHINORRHOEA [None]
  - URTICARIA [None]
